FAERS Safety Report 6993816-9 (Version None)
Quarter: 2010Q3

REPORT INFORMATION
  Report Type: 
  Country: None (occurrence: None)
  Receive Date: 20100917
  Receipt Date: 20100312
  Transmission Date: 20110219
  Serious: No
  Sender: FDA-Public Use
  Company Number: US-ASTRAZENECA-2010SE10903

PATIENT
  Age: 523 Month
  Sex: Female
  Weight: 81.6 kg

DRUGS (4)
  1. SEROQUEL [Suspect]
     Indication: BIPOLAR DISORDER
     Route: 048
     Dates: start: 20010101, end: 20091001
  2. SEROQUEL [Suspect]
     Indication: SLEEP DISORDER
     Route: 048
     Dates: start: 20010101, end: 20091001
  3. LITHIUM CARBONATE [Concomitant]
  4. ABILIFY [Concomitant]

REACTIONS (2)
  - BIPOLAR DISORDER [None]
  - DRUG DOSE OMISSION [None]
